FAERS Safety Report 8560716-2 (Version None)
Quarter: 2012Q3

REPORT INFORMATION
  Report Type: 
  Country: None (occurrence: None)
  Receive Date: 20120802
  Receipt Date: 20120731
  Transmission Date: 20120928
  Serious: Yes (Hospitalization, Other)
  Sender: FDA-Public Use
  Company Number: PHHY2012BR038895

PATIENT
  Sex: Male

DRUGS (10)
  1. ALDACTONE [Concomitant]
     Indication: CARDIAC DISORDER
     Dosage: 1 DF DAILY
  2. SIMVASTATIN [Concomitant]
     Indication: BLOOD CHOLESTEROL
     Dosage: 1 DF DAILY
  3. ASPIRIN [Concomitant]
     Indication: BLOOD DISORDER
     Dosage: 1 DF DAILY
  4. DIOVAN [Suspect]
     Dosage: 320 MG, UNK
  5. ALBUTEROL [Concomitant]
     Indication: ASTHMA
  6. FORMOTEROL FUMARATE [Suspect]
     Indication: ASTHMA
     Dosage: 2 DF, UNK
  7. ONBREZ [Suspect]
     Indication: BRONCHITIS
     Dosage: 150 UG, UNK
  8. IPRATROPIUM BROMIDE [Concomitant]
     Indication: ASTHMA
  9. CARVEDILOL [Concomitant]
     Indication: CARDIAC DISORDER
     Dosage: 2 DF DAILY
  10. ISOSORBIDE MONONITRATE [Concomitant]
     Indication: CARDIAC DISORDER
     Dosage: 2 DF DAILY

REACTIONS (3)
  - BLOOD PRESSURE FLUCTUATION [None]
  - DIZZINESS [None]
  - PNEUMONIA [None]
